FAERS Safety Report 4852512-4 (Version None)
Quarter: 2005Q4

REPORT INFORMATION
  Report Type: 
  Country: None (occurrence: None)
  Receive Date: 20051213
  Receipt Date: 20051205
  Transmission Date: 20060501
  Serious: Yes (Other)
  Sender: FDA-Public Use
  Company Number: PHEH2005US13207

PATIENT
  Age: 77 Year
  Sex: Male

DRUGS (1)
  1. ZOMETA [Suspect]
     Indication: PROSTATE CANCER METASTATIC
     Dosage: UNK Q3MO
     Route: 042
     Dates: start: 20020101

REACTIONS (8)
  - APHTHOUS STOMATITIS [None]
  - BONE DISORDER [None]
  - DENTAL TREATMENT [None]
  - FISTULA [None]
  - IMPAIRED HEALING [None]
  - ORAL PAIN [None]
  - TOOTH DISORDER [None]
  - TOOTH EXTRACTION [None]
